FAERS Safety Report 8932622 (Version 2)
Quarter: 2013Q1

REPORT INFORMATION
  Report Type: Spontaneous
  Country: US (occurrence: US)
  Receive Date: 20121128
  Receipt Date: 20130122
  Transmission Date: 20140127
  Serious: No
  Sender: FDA-Public Use
  Company Number: US-B.I. PHARMACEUTICALS,INC./RIDGEFIELD-2012-BI-01079BP

PATIENT
  Age: 71 None
  Sex: Female

DRUGS (5)
  1. SPIRIVA [Suspect]
     Indication: BRONCHITIS CHRONIC
     Dosage: 18 MCG
     Route: 055
     Dates: start: 201208
  2. TRAMADOL [Concomitant]
     Indication: PAIN
     Route: 048
  3. CLONAZEPAM [Concomitant]
     Indication: ANXIETY
     Route: 048
  4. TEMAZEPAM [Concomitant]
     Indication: SLEEP DISORDER
     Route: 048
  5. ESTROGEN [Concomitant]
     Route: 048

REACTIONS (5)
  - Bone disorder [Not Recovered/Not Resolved]
  - Dyspnoea [Recovered/Resolved]
  - Heart rate increased [Recovered/Resolved]
  - Wheezing [Recovered/Resolved]
  - Product quality issue [Recovered/Resolved]
